FAERS Safety Report 5365209-1 (Version None)
Quarter: 2007Q2

REPORT INFORMATION
  Report Type: 
  Country: None (occurrence: None)
  Receive Date: 20070621
  Receipt Date: 20070608
  Transmission Date: 20071010
  Serious: Yes (Hospitalization)
  Sender: FDA-Public Use
  Company Number: GB-BAUSCH-2007BL001876

PATIENT
  Age: 10 Year
  Sex: Female

DRUGS (5)
  1. PREDNISOLONE SODIUM PHOSPHATE [Suspect]
     Indication: RENAL TRANSPLANT
     Route: 048
  2. PREDNISOLONE SODIUM PHOSPHATE [Suspect]
  3. AZATHIOPRINE [Suspect]
     Indication: RENAL TRANSPLANT
  4. ANTILYMPHOCYTE GLOBULIN [Suspect]
     Indication: RENAL TRANSPLANT
  5. CYCLOSPORINE [Suspect]
     Indication: RENAL TRANSPLANT

REACTIONS (12)
  - CUSHINGOID [None]
  - EPSTEIN-BARR VIRUS INFECTION [None]
  - EYELID DISORDER [None]
  - GINGIVAL HYPERTROPHY [None]
  - GINGIVAL SWELLING [None]
  - LYMPHOPROLIFERATIVE DISORDER [None]
  - MASS [None]
  - MOUTH ULCERATION [None]
  - OSTEOLYSIS [None]
  - PARAESTHESIA ORAL [None]
  - TONSILLITIS [None]
  - TOOTH DISORDER [None]
